FAERS Safety Report 4486222-2 (Version None)
Quarter: 2004Q4

REPORT INFORMATION
  Report Type: 
  Country: None (occurrence: None)
  Receive Date: 20041021
  Receipt Date: 20041011
  Transmission Date: 20050328
  Serious: Yes (Life-Threatening)
  Sender: FDA-Public Use
  Company Number: A06200400273

PATIENT
  Age: 49 Year
  Sex: Male

DRUGS (4)
  1. ELOXATIN - (OXALIPLATIN) - POWDER - 100 MG [Suspect]
     Indication: COLON CANCER METASTATIC
     Dosage: 100 MG OTHER INTRAVENOUS DRIP
     Route: 041
     Dates: start: 20040927, end: 20040927
  2. ELOXATIN - (OXALIPLATIN) - POWDER - 100 MG [Suspect]
     Indication: METASTASES TO LIVER
     Dosage: 100 MG OTHER INTRAVENOUS DRIP
     Route: 041
     Dates: start: 20040927, end: 20040927
  3. ELOXATIN - (OXALIPLATIN) - POWDER - 100 MG [Suspect]
     Indication: METASTASES TO LYMPH NODES
     Dosage: 100 MG OTHER INTRAVENOUS DRIP
     Route: 041
     Dates: start: 20040927, end: 20040927
  4. LEUCOVORIN CALCIUM [Concomitant]

REACTIONS (1)
  - ACUTE RESPIRATORY FAILURE [None]
